FAERS Safety Report 20490447 (Version 1)
Quarter: 2022Q1

REPORT INFORMATION
  Report Type: Spontaneous
  Country: US (occurrence: US)
  Receive Date: 20220218
  Receipt Date: 20220218
  Transmission Date: 20220423
  Serious: Yes (Death, Other)
  Sender: FDA-Public Use
  Company Number: US-UNITED THERAPEUTICS-UNT-2022-002756

PATIENT
  Sex: Female

DRUGS (1)
  1. UNITUXIN [Suspect]
     Active Substance: DINUTUXIMAB
     Indication: Neuroblastoma recurrent
     Dosage: UNK, CYCLICAL
     Route: 041

REACTIONS (5)
  - Death [Fatal]
  - Renal failure [Unknown]
  - Toxicity to various agents [Unknown]
  - Vision blurred [Recovered/Resolved]
  - Off label use [Unknown]
